APPROVED DRUG PRODUCT: GLIMEPIRIDE
Active Ingredient: GLIMEPIRIDE
Strength: 1MG
Dosage Form/Route: TABLET;ORAL
Application: A077911 | Product #001 | TE Code: AB
Applicant: CARLSBAD TECHNOLOGY INC
Approved: Sep 22, 2009 | RLD: No | RS: No | Type: RX